FAERS Safety Report 7959393-0 (Version None)
Quarter: 2011Q4

REPORT INFORMATION
  Report Type: 
  Country: None (occurrence: None)
  Receive Date: 20111206
  Receipt Date: 20111130
  Transmission Date: 20120403
  Serious: Yes (Death, Hospitalization)
  Sender: FDA-Public Use
  Company Number: US-B.I. PHARMACEUTICALS,INC./RIDGEFIELD-2011-EU-00733GD

PATIENT

DRUGS (1)
  1. DABIGATRAN ETEXILATE [Suspect]

REACTIONS (6)
  - FALL [None]
  - COAGULOPATHY [None]
  - HEAD INJURY [None]
  - EXSANGUINATION [None]
  - HAEMORRHAGE INTRACRANIAL [None]
  - NEUROLOGICAL DECOMPENSATION [None]
